FAERS Safety Report 6463353-9 (Version None)
Quarter: 2009Q4

REPORT INFORMATION
  Report Type: 
  Country: None (occurrence: None)
  Receive Date: 20091130
  Receipt Date: 20090723
  Transmission Date: 20100525
  Serious: No
  Sender: FDA-Public Use
  Company Number: US-AMGEN-KDL300749

PATIENT
  Sex: Female
  Weight: 163.4 kg

DRUGS (1)
  1. ENBREL [Suspect]
     Indication: PSORIATIC ARTHROPATHY
     Route: 058
     Dates: start: 20071015

REACTIONS (3)
  - DYSFUNCTIONAL UTERINE BLEEDING [None]
  - ENDOMETRIAL HYPERTROPHY [None]
  - INFECTION [None]
